FAERS Safety Report 18605181 (Version 1)
Quarter: 2020Q4

REPORT INFORMATION
  Report Type: Spontaneous
  Country: US (occurrence: US)
  Receive Date: 20201211
  Receipt Date: 20201211
  Transmission Date: 20210114
  Serious: No
  Sender: FDA-Public Use
  Company Number: US-TEVA-2020-US-1857882

PATIENT
  Age: 50 Year
  Sex: Female

DRUGS (2)
  1. NEFAZODONE TEVA [Suspect]
     Active Substance: NEFAZODONE
     Route: 065
  2. NEFAZODONE TEVA [Suspect]
     Active Substance: NEFAZODONE
     Indication: DEPRESSION
     Route: 065

REACTIONS (11)
  - Blood pressure decreased [Not Recovered/Not Resolved]
  - Fatigue [Unknown]
  - Slow response to stimuli [Not Recovered/Not Resolved]
  - Malaise [Unknown]
  - Decreased activity [Unknown]
  - Personality change [Not Recovered/Not Resolved]
  - Lethargy [Not Recovered/Not Resolved]
  - Abdominal discomfort [Not Recovered/Not Resolved]
  - Dizziness [Not Recovered/Not Resolved]
  - Nausea [Not Recovered/Not Resolved]
  - Vertigo [Not Recovered/Not Resolved]
